FAERS Safety Report 17132710 (Version 2)
Quarter: 2020Q1

REPORT INFORMATION
  Report Type: Spontaneous
  Country: US (occurrence: US)
  Receive Date: 20191210
  Receipt Date: 20200212
  Transmission Date: 20200409
  Serious: No
  Sender: FDA-Public Use
  Company Number: US-BRISTOL-MYERS SQUIBB COMPANY-BMS-2019-118358

PATIENT
  Sex: Female

DRUGS (1)
  1. ORENCIA [Suspect]
     Active Substance: ABATACEPT
     Indication: IMMUNODEFICIENCY
     Dosage: 125MG/ML (EVERY 7DAYS)
     Route: 058
     Dates: start: 20190318

REACTIONS (2)
  - Intentional product use issue [Unknown]
  - Treatment failure [Unknown]
